FAERS Safety Report 17558176 (Version 1)
Quarter: 2020Q1

REPORT INFORMATION
  Report Type: Report from Study
  Country: FR (occurrence: FR)
  Receive Date: 20200318
  Receipt Date: 20200318
  Transmission Date: 20200409
  Serious: Yes (Hospitalization)
  Sender: FDA-Public Use
  Company Number: FR-JNJFOC-20200236883

PATIENT
  Age: 61 Year
  Sex: Female
  Weight: 68 kg

DRUGS (7)
  1. SPRAVATO [Suspect]
     Active Substance: ESKETAMINE
     Indication: DEPRESSION
     Dates: start: 20200217
  2. SPRAVATO [Suspect]
     Active Substance: ESKETAMINE
     Dates: start: 20200302, end: 20200305
  3. SPRAVATO [Suspect]
     Active Substance: ESKETAMINE
     Dates: start: 20200224
  4. BRINTELLIX [Concomitant]
     Active Substance: VORTIOXETINE HYDROBROMIDE
     Indication: ANTIDEPRESSANT THERAPY
     Route: 048
     Dates: start: 20200213
  5. SPRAVATO [Suspect]
     Active Substance: ESKETAMINE
     Dates: start: 20200227
  6. QUETIAPINE. [Concomitant]
     Active Substance: QUETIAPINE
     Route: 048
  7. SPRAVATO [Suspect]
     Active Substance: ESKETAMINE
     Dates: start: 20200220

REACTIONS (5)
  - Depersonalisation/derealisation disorder [Recovered/Resolved]
  - Dissociation [Unknown]
  - Somnolence [Unknown]
  - Anxiety [Recovered/Resolved]
  - Dizziness [Unknown]

NARRATIVE: CASE EVENT DATE: 20200217
